FAERS Safety Report 7721624-X (Version None)
Quarter: 2011Q3

REPORT INFORMATION
  Report Type: 
  Country: None (occurrence: None)
  Receive Date: 20110831
  Receipt Date: 20110819
  Transmission Date: 20111222
  Serious: Yes (Hospitalization)
  Sender: FDA-Public Use
  Company Number: US-GLAXOSMITHKLINE-A0746656A

PATIENT
  Age: 44 Year
  Sex: Female
  Weight: 101.4 kg

DRUGS (10)
  1. TENORMIN [Concomitant]
  2. VIOXX [Concomitant]
  3. AVANDIA [Suspect]
     Indication: TYPE 2 DIABETES MELLITUS
     Dosage: 2MG PER DAY
     Route: 048
     Dates: start: 19990101, end: 20070101
  4. ZOLOFT [Concomitant]
  5. ZOCOR [Concomitant]
  6. METOPROLOL TARTRATE [Concomitant]
  7. METFORMIN [Concomitant]
  8. HYDROCHLOROTHIAZIDE [Concomitant]
  9. PROZAC [Concomitant]
  10. HUMALOG [Concomitant]

REACTIONS (2)
  - CEREBROVASCULAR ACCIDENT [None]
  - MYOCARDIAL INFARCTION [None]
